FAERS Safety Report 11566559 (Version 1)
Quarter: 2015Q3

REPORT INFORMATION
  Report Type: Spontaneous
  Country: US (occurrence: US)
  Receive Date: 20150916
  Receipt Date: 20150916
  Transmission Date: 20151125
  Serious: No
  Sender: FDA-Public Use
  Company Number: US-ELI_LILLY_AND_COMPANY-US200906003458

PATIENT
  Age: 79 Year
  Sex: Female

DRUGS (4)
  1. ALBUTEROL. [Concomitant]
     Active Substance: ALBUTEROL
     Dosage: UNK, 4/D
  2. FORTEO [Suspect]
     Active Substance: TERIPARATIDE
     Dates: start: 20090612, end: 200906
  3. OXYGEN. [Concomitant]
     Active Substance: OXYGEN
     Dosage: UNK, OTHER
     Dates: start: 20090613
  4. OXYGEN. [Concomitant]
     Active Substance: OXYGEN
     Dosage: 2 LITER, EACH EVENING

REACTIONS (6)
  - Dizziness [Unknown]
  - Musculoskeletal pain [Unknown]
  - Dyspnoea [Recovering/Resolving]
  - Back pain [Unknown]
  - Muscle spasms [Recovering/Resolving]
  - Mobility decreased [Unknown]

NARRATIVE: CASE EVENT DATE: 200906
